FAERS Safety Report 5937155-3 (Version None)
Quarter: 2008Q4

REPORT INFORMATION
  Report Type: 
  Country: None (occurrence: None)
  Receive Date: 20081031
  Receipt Date: 20081029
  Transmission Date: 20090506
  Serious: Yes (Hospitalization)
  Sender: FDA-Public Use
  Company Number: DE-BRISTOL-MYERS SQUIBB COMPANY-14258008

PATIENT
  Age: 58 Year
  Sex: Female
  Weight: 125 kg

DRUGS (3)
  1. TAXOL [Suspect]
     Indication: BREAST CANCER
     Dosage: THERAPY START DATE 10-JUN-2008
     Dates: start: 20080624, end: 20080624
  2. EPIRUBICIN [Suspect]
     Indication: BREAST CANCER
     Dosage: THERAPY START DATE 29-APR-2008
     Dates: start: 20080527, end: 20080527
  3. LEVOTHYROXINE SODIUM [Concomitant]
     Dates: start: 20000101

REACTIONS (1)
  - CIRCULATORY COLLAPSE [None]
